FAERS Safety Report 9477782 (Version 2)
Quarter: 2013Q3

REPORT INFORMATION
  Report Type: Spontaneous
  Country: AU (occurrence: AU)
  Receive Date: 20130827
  Receipt Date: 20130831
  Transmission Date: 20140515
  Serious: Yes (Hospitalization, Other)
  Sender: FDA-Public Use
  Company Number: AU-AMGEN-AUSSP2013058972

PATIENT
  Age: 84 Year
  Sex: Female

DRUGS (4)
  1. PROLIA [Suspect]
     Indication: OSTEOPOROSIS POSTMENOPAUSAL
     Dosage: UNK
     Route: 065
  2. LETROZOLE [Concomitant]
  3. NATURES OWN CALCIUM ASCORBATE [Concomitant]
     Dosage: 600 MG, UNK
  4. VITAMIN D                          /00107901/ [Concomitant]
     Dosage: 800 IU, UNK

REACTIONS (4)
  - Syncope [Unknown]
  - Electrocardiogram QT prolonged [Unknown]
  - Paraesthesia [Unknown]
  - Hypocalcaemia [Recovered/Resolved]
